FAERS Safety Report 6220808-X (Version None)
Quarter: 2009Q2

REPORT INFORMATION
  Report Type: 
  Country: None (occurrence: None)
  Receive Date: 20090610
  Receipt Date: 20090601
  Transmission Date: 20091009
  Serious: Yes (Other)
  Sender: FDA-Public Use
  Company Number: US-BAYER-200922017NA

PATIENT
  Sex: Female

DRUGS (1)
  1. YAZ [Suspect]
     Indication: DRUG USE FOR UNKNOWN INDICATION
     Route: 048
     Dates: start: 20070401

REACTIONS (9)
  - ANXIETY [None]
  - DYSPNOEA [None]
  - FATIGUE [None]
  - FEAR [None]
  - HYPERHIDROSIS [None]
  - INJURY [None]
  - MUSCULOSKELETAL PAIN [None]
  - PAIN [None]
  - PULMONARY EMBOLISM [None]
